FAERS Safety Report 4314607-3 (Version None)
Quarter: 2004Q1

REPORT INFORMATION
  Report Type: 
  Country: None (occurrence: None)
  Receive Date: 20040309
  Receipt Date: 20040223
  Transmission Date: 20041129
  Serious: Yes (Death)
  Sender: FDA-Public Use
  Company Number: S04-FRA-00869-01

PATIENT
  Age: 95 Year
  Sex: Male

DRUGS (6)
  1. MEMANTINE HCL [Suspect]
     Dosage: 5 MG QD PO
     Route: 048
     Dates: start: 20040218, end: 20040218
  2. SEROPRAM (CITALOPRAM HYDROBROMIDE) [Concomitant]
  3. ARICEPT [Concomitant]
  4. EQUANIL [Concomitant]
  5. FOLIC ACID [Concomitant]
  6. MOTILIUM-M (DOMPERIDONE MALEATE) [Concomitant]

REACTIONS (1)
  - DEATH [None]
